FAERS Safety Report 7675317-8 (Version None)
Quarter: 2011Q3

REPORT INFORMATION
  Report Type: 
  Country: None (occurrence: None)
  Receive Date: 20110810
  Receipt Date: 20110729
  Transmission Date: 20111222
  Serious: Yes (Other)
  Sender: FDA-Public Use
  Company Number: US-MYLANLABS-2011S1015929

PATIENT
  Age: 60 Year
  Sex: Male
  Weight: 95.26 kg

DRUGS (5)
  1. FENTANYL-100 [Suspect]
     Indication: NECK PAIN
     Dosage: Q48H
     Route: 062
     Dates: start: 20110601
  2. PROMETHAZINE [Concomitant]
     Indication: NAUSEA
  3. MOBIC [Concomitant]
     Indication: ARTHRITIS
  4. OXYCODONE HCL [Concomitant]
     Indication: BREAKTHROUGH PAIN
     Route: 048
  5. PROTONIX [Concomitant]

REACTIONS (1)
  - DRUG WITHDRAWAL SYNDROME [None]
